FAERS Safety Report 8142264-7 (Version None)
Quarter: 2012Q1

REPORT INFORMATION
  Report Type: 
  Country: None (occurrence: None)
  Receive Date: 20120103
  Receipt Date: 20111116
  Transmission Date: 20120608
  Serious: No
  Sender: FDA-Public Use
  Company Number: AE-2011-002407

PATIENT
  Age: 59 Year
  Sex: Female
  Weight: 97.5234 kg

DRUGS (14)
  1. RIBAVIRIN [Concomitant]
  2. MILK THISTLE [Concomitant]
  3. PEGASYS [Concomitant]
  4. LEXAPRO [Concomitant]
  5. ASPIRIN [Concomitant]
  6. INCIVEK [Suspect]
     Dosage: 2250 MG (750 MG, 1 IN 8 HR), ORAL
     Route: 048
     Dates: start: 20110915
  7. PROMETHAZINE [Concomitant]
  8. OMEPRAZOLE [Concomitant]
  9. TIZANDINE (TIZANIDINE) [Concomitant]
  10. LISINOPRIL [Concomitant]
  11. RANITIDINE HYDROCHLORIDE [Concomitant]
  12. LEVOTHYROXINE SODIUM [Concomitant]
  13. NAPROSYN [Concomitant]
  14. HYDROXYZINE [Concomitant]

REACTIONS (6)
  - RASH [None]
  - PRURITUS [None]
  - EAR INFECTION [None]
  - BACK PAIN [None]
  - FATIGUE [None]
  - INFLUENZA LIKE ILLNESS [None]
